FAERS Safety Report 5561518-1 (Version None)
Quarter: 2007Q4

REPORT INFORMATION
  Report Type: 
  Country: None (occurrence: None)
  Receive Date: 20071215
  Receipt Date: 20071018
  Transmission Date: 20080405
  Serious: No
  Sender: FDA-Public Use
  Company Number: US-AMGEN-KDL248550

PATIENT
  Sex: Male

DRUGS (2)
  1. ENBREL [Suspect]
     Dates: start: 20060601, end: 20070801
  2. KENALOG [Concomitant]

REACTIONS (2)
  - PSORIASIS [None]
  - SPINAL COLUMN STENOSIS [None]
